FAERS Safety Report 25002465 (Version 1)
Quarter: 2025Q1

REPORT INFORMATION
  Report Type: Report from Study
  Country: US (occurrence: None)
  Receive Date: 20250224
  Receipt Date: 20250224
  Transmission Date: 20250409
  Serious: Yes (Death, Hospitalization, Other)
  Sender: NODEN PHARMA
  Company Number: US-Noden Pharma DAC-NOD202502-000016

PATIENT
  Age: 70 Year
  Sex: Male

DRUGS (15)
  1. COCAINE HYDROCHLORIDE [Suspect]
     Active Substance: COCAINE HYDROCHLORIDE
     Indication: Product used for unknown indication
     Route: 048
  2. COCAINE HYDROCHLORIDE [Suspect]
     Active Substance: COCAINE HYDROCHLORIDE
  3. COCAINE HYDROCHLORIDE [Suspect]
     Active Substance: COCAINE HYDROCHLORIDE
     Route: 065
  4. FENTANYL [Suspect]
     Active Substance: FENTANYL
     Indication: Product used for unknown indication
     Route: 048
  5. FENTANYL [Suspect]
     Active Substance: FENTANYL
  6. FENTANYL [Suspect]
     Active Substance: FENTANYL
     Route: 065
  7. CYPERMETHRIN [Suspect]
     Active Substance: CYPERMETHRIN
     Indication: Product used for unknown indication
     Route: 048
  8. CYPERMETHRIN [Suspect]
     Active Substance: CYPERMETHRIN
  9. CYPERMETHRIN [Suspect]
     Active Substance: CYPERMETHRIN
     Route: 065
  10. METHAMPHETAMINE [Suspect]
     Active Substance: METHAMPHETAMINE
     Indication: Product used for unknown indication
     Route: 048
  11. METHAMPHETAMINE [Suspect]
     Active Substance: METHAMPHETAMINE
  12. METHAMPHETAMINE [Suspect]
     Active Substance: METHAMPHETAMINE
     Route: 065
  13. NALOXONE [Suspect]
     Active Substance: NALOXONE
     Indication: Product used for unknown indication
     Route: 048
  14. NALOXONE [Suspect]
     Active Substance: NALOXONE
  15. NALOXONE [Suspect]
     Active Substance: NALOXONE
     Route: 065

REACTIONS (2)
  - Suspected suicide [Fatal]
  - Product use issue [Unknown]
